FAERS Safety Report 6288372-7 (Version None)
Quarter: 2009Q3

REPORT INFORMATION
  Report Type: 
  Country: None (occurrence: None)
  Receive Date: 20090729
  Receipt Date: 20090717
  Transmission Date: 20100115
  Serious: Yes (Hospitalization)
  Sender: FDA-Public Use
  Company Number: FR-PFIZER INC-2009242757

PATIENT
  Age: 45 Year

DRUGS (1)
  1. ZITHROMAX [Suspect]
     Dosage: UNK
     Dates: start: 20090701, end: 20090701

REACTIONS (3)
  - C-REACTIVE PROTEIN INCREASED [None]
  - PANCYTOPENIA [None]
  - PURPURA [None]
